FAERS Safety Report 7334611-0 (Version None)
Quarter: 2011Q1

REPORT INFORMATION
  Report Type: 
  Country: None (occurrence: None)
  Receive Date: 20110307
  Receipt Date: 20110224
  Transmission Date: 20110831
  Serious: Yes (Other)
  Sender: FDA-Public Use
  Company Number: US-ELI_LILLY_AND_COMPANY-US201102007228

PATIENT
  Sex: Male

DRUGS (4)
  1. HUMALOG [Suspect]
     Indication: DIABETES MELLITUS
     Dosage: 10 U, OTHER
  2. HUMALOG [Suspect]
     Dosage: 15 U, OTHER
  3. HUMULIN N [Suspect]
     Indication: DIABETES MELLITUS
     Dosage: 32 U, EACH MORNING
  4. HUMULIN N [Suspect]
     Dosage: 50 U, OTHER

REACTIONS (8)
  - HYPOACUSIS [None]
  - BLOOD CHOLESTEROL INCREASED [None]
  - SURGERY [None]
  - DEPRESSION [None]
  - PROSTATOMEGALY [None]
  - BLOOD PRESSURE INCREASED [None]
  - GASTROOESOPHAGEAL REFLUX DISEASE [None]
  - RETINITIS PIGMENTOSA [None]
